FAERS Safety Report 7509180-2 (Version None)
Quarter: 2011Q2

REPORT INFORMATION
  Report Type: 
  Country: None (occurrence: None)
  Receive Date: 20110527
  Receipt Date: 20101207
  Transmission Date: 20111010
  Serious: No
  Sender: FDA-Public Use
  Company Number: US-MYLANLABS-2010S1022306

PATIENT
  Age: 64 Year
  Sex: Female

DRUGS (10)
  1. AMITRIPTYLINE HCL [Suspect]
     Indication: LICHEN PLANUS
     Route: 048
     Dates: start: 20100701
  2. PROPRANOLOL [Concomitant]
     Indication: MIGRAINE
  3. SYNTHROID [Concomitant]
     Indication: HYPOTHYROIDISM
  4. PANTOPRAZOLE [Concomitant]
     Indication: GASTROOESOPHAGEAL REFLUX DISEASE
  5. AMITRIPTYLINE HCL [Suspect]
     Route: 048
     Dates: start: 20100701
  6. CRESTOR [Concomitant]
     Indication: BLOOD CHOLESTEROL INCREASED
  7. MIRALAX /00754501/ [Concomitant]
  8. SINGULAIR [Concomitant]
     Indication: SEASONAL ALLERGY
  9. FISH OIL [Concomitant]
     Indication: BLOOD CHOLESTEROL
     Dosage: LOVASA BRAND NAME
  10. VITAMIN TAB [Concomitant]

REACTIONS (5)
  - INCREASED APPETITE [None]
  - PRURITUS [None]
  - VULVOVAGINAL PRURITUS [None]
  - GENITAL BURNING SENSATION [None]
  - DRUG INEFFECTIVE FOR UNAPPROVED INDICATION [None]
